FAERS Safety Report 25321726 (Version 1)
Quarter: 2025Q2

REPORT INFORMATION
  Report Type: Spontaneous
  Country: FR (occurrence: FR)
  Receive Date: 20250516
  Receipt Date: 20250516
  Transmission Date: 20250716
  Serious: Yes (Congenital Anomaly)
  Sender: ABBVIE
  Company Number: None

PATIENT
  Sex: Female

DRUGS (12)
  1. CREON [Suspect]
     Active Substance: PANCRELIPASE AMYLASE\PANCRELIPASE LIPASE\PANCRELIPASE PROTEASE
     Indication: Maternal exposure timing unspecified
     Route: 064
  2. ALBUTEROL [Suspect]
     Active Substance: ALBUTEROL
     Indication: Maternal exposure timing unspecified
     Route: 064
  3. TEZACAFTOR [Suspect]
     Active Substance: TEZACAFTOR
     Indication: Maternal exposure timing unspecified
     Route: 064
  4. LEVOTHYROXINE [Suspect]
     Active Substance: LEVOTHYROXINE
     Indication: Maternal exposure timing unspecified
     Route: 064
  5. PANTOPRAZOLE [Suspect]
     Active Substance: PANTOPRAZOLE
     Indication: Maternal exposure timing unspecified
     Route: 064
  6. ELEXACAFTOR [Suspect]
     Active Substance: ELEXACAFTOR
     Indication: Maternal exposure timing unspecified
     Route: 064
  7. COLISTIMETHATE SODIUM [Suspect]
     Active Substance: COLISTIMETHATE SODIUM
     Indication: Maternal exposure timing unspecified
     Route: 064
  8. IVACAFTOR [Suspect]
     Active Substance: IVACAFTOR
     Indication: Maternal exposure timing unspecified
     Route: 064
  9. FERROUS FUMARATE [Suspect]
     Active Substance: FERROUS FUMARATE
     Indication: Maternal exposure timing unspecified
     Route: 064
  10. SERETIDE [Suspect]
     Active Substance: FLUTICASONE PROPIONATE\SALMETEROL XINAFOATE
     Indication: Maternal exposure timing unspecified
     Route: 064
  11. POLYETHYLENE GLYCOL 4000 [Suspect]
     Active Substance: POLYETHYLENE GLYCOL 4000
     Indication: Maternal exposure timing unspecified
     Route: 064
  12. TOBI [Suspect]
     Active Substance: TOBRAMYCIN
     Indication: Maternal exposure timing unspecified
     Route: 064

REACTIONS (2)
  - Pelvic kidney [Recovered/Resolved with Sequelae]
  - Foetal exposure during pregnancy [Unknown]

NARRATIVE: CASE EVENT DATE: 20230324
